FAERS Safety Report 11306172 (Version 2)
Quarter: 2015Q3

REPORT INFORMATION
  Report Type: Spontaneous
  Country: US (occurrence: US)
  Receive Date: 20150723
  Receipt Date: 20150730
  Transmission Date: 20151125
  Serious: No
  Sender: FDA-Public Use
  Company Number: US-PFIZER INC-2015241501

PATIENT
  Age: 45 Year
  Sex: Male
  Weight: 102 kg

DRUGS (11)
  1. LYRICA [Suspect]
     Active Substance: PREGABALIN
     Indication: NEURALGIA
     Dosage: 100 MG, 3X/DAY
     Route: 048
     Dates: start: 2012, end: 201505
  2. VALTREX [Concomitant]
     Active Substance: VALACYCLOVIR HYDROCHLORIDE
  3. CELEXA [Concomitant]
     Active Substance: CITALOPRAM HYDROBROMIDE
     Indication: DEPRESSION
     Dosage: 40 MG, 1X/DAY
     Route: 048
  4. VICODIN [Concomitant]
     Active Substance: ACETAMINOPHEN\HYDROCODONE BITARTRATE
     Dosage: 500MG 2-3 TIMES A DAY
     Route: 048
  5. CELEXA [Concomitant]
     Active Substance: CITALOPRAM HYDROBROMIDE
     Indication: ANXIETY
  6. LYRICA [Suspect]
     Active Substance: PREGABALIN
     Indication: PARAESTHESIA
  7. LYRICA [Suspect]
     Active Substance: PREGABALIN
     Indication: HYPOAESTHESIA
  8. LIDOCAINE. [Concomitant]
     Active Substance: LIDOCAINE
  9. CELEXA [Concomitant]
     Active Substance: CITALOPRAM HYDROBROMIDE
     Indication: POST-TRAUMATIC STRESS DISORDER
  10. ATIVAN [Concomitant]
     Active Substance: LORAZEPAM
     Dosage: 1 MG, AS NEEDED (UP TO 3 TIMES A DAY)
  11. NORCO [Concomitant]
     Active Substance: ACETAMINOPHEN\HYDROCODONE BITARTRATE
     Indication: NEURALGIA
     Dosage: 7.5 MG, 2X/DAY AS NEEDED
     Route: 048

REACTIONS (2)
  - Condition aggravated [Unknown]
  - Pain [Unknown]

NARRATIVE: CASE EVENT DATE: 2015
